FAERS Safety Report 5443565-3 (Version None)
Quarter: 2007Q3

REPORT INFORMATION
  Report Type: 
  Country: None (occurrence: None)
  Receive Date: 20070730
  Receipt Date: 20070122
  Transmission Date: 20080115
  Serious: No
  Sender: FDA-Public Use
  Company Number: 235367

PATIENT
  Age: 43 Year
  Sex: Male
  Weight: 84 kg

DRUGS (10)
  1. RITUXAN [Suspect]
     Indication: NON-HODGKIN'S LYMPHOMA
     Dosage: SEE IMAGE
     Route: 042
     Dates: start: 20070112, end: 20070112
  2. RITUXAN [Suspect]
     Indication: NON-HODGKIN'S LYMPHOMA
     Dosage: SEE IMAGE
     Route: 042
     Dates: start: 20070119
  3. RITUXAN [Suspect]
     Indication: NON-HODGKIN'S LYMPHOMA
     Dosage: SEE IMAGE
     Route: 042
     Dates: start: 20070119
  4. RITUXAN [Suspect]
     Indication: NON-HODGKIN'S LYMPHOMA
     Dosage: SEE IMAGE
     Route: 042
     Dates: start: 20070119
  5. RITUXAN [Suspect]
     Indication: NON-HODGKIN'S LYMPHOMA
     Dosage: SEE IMAGE
     Route: 042
     Dates: start: 20070119
  6. MEPERIDINE HCL [Concomitant]
  7. SOLU-MEDROL (METHYLPREDINSOLONE SODIUM SUCCINATE) [Concomitant]
  8. FEXOFENADINE (FEXOFENADINE HYDROCHLORIDE) [Concomitant]
  9. SOLU-MEDROL [Concomitant]
  10. FEXOFENADINE (FEXOFENADINE HYDROCHLORIDE) [Concomitant]

REACTIONS (2)
  - BLOOD PRESSURE DECREASED [None]
  - OXYGEN SATURATION DECREASED [None]
